FAERS Safety Report 5452913-X (Version None)
Quarter: 2007Q3

REPORT INFORMATION
  Report Type: 
  Country: None (occurrence: None)
  Receive Date: 20070914
  Receipt Date: 20070906
  Transmission Date: 20080115
  Serious: Yes (Hospitalization)
  Sender: FDA-Public Use
  Company Number: B0486758A

PATIENT
  Age: 71 Year
  Sex: Male

DRUGS (3)
  1. ARIXTRA [Suspect]
     Indication: VENOUS THROMBOSIS
     Dosage: 7.5MG PER DAY
     Route: 042
     Dates: start: 20070823, end: 20070827
  2. PRAVASTATIN [Concomitant]
     Dosage: 20MG PER DAY
  3. OGAST [Concomitant]
     Dosage: 1TAB PER DAY

REACTIONS (2)
  - PRURITUS [None]
  - PURPURA [None]
